FAERS Safety Report 13340952 (Version 1)
Quarter: 2017Q1

REPORT INFORMATION
  Report Type: Spontaneous
  Country: NL (occurrence: NL)
  Receive Date: 20170316
  Receipt Date: 20170316
  Transmission Date: 20170428
  Serious: Yes (Other)
  Sender: FDA-Public Use
  Company Number: NL-FRESENIUS KABI-FK201702111

PATIENT
  Age: 61 Year
  Sex: Female

DRUGS (2)
  1. GENTAMICIN. [Concomitant]
     Active Substance: GENTAMICIN
     Indication: URINARY TRACT INFECTION
  2. CEFUROXIME (MANUFACTURER UNKNOWN) [Suspect]
     Active Substance: CEFUROXIME
     Indication: URINARY TRACT INFECTION
     Route: 042

REACTIONS (1)
  - Neurotoxicity [Recovered/Resolved]
